FAERS Safety Report 5424149-X (Version None)
Quarter: 2007Q3

REPORT INFORMATION
  Report Type: 
  Country: None (occurrence: None)
  Receive Date: 20070823
  Receipt Date: 20070815
  Transmission Date: 20080115
  Serious: Yes (Death, Hospitalization, Other)
  Sender: FDA-Public Use
  Company Number: US-PFIZER INC-2007050732

PATIENT
  Sex: Female
  Weight: 104.3 kg

DRUGS (1)
  1. CELEBREX [Suspect]
     Route: 048
     Dates: start: 19990101, end: 20000429

REACTIONS (3)
  - CEREBROVASCULAR ACCIDENT [None]
  - GASTRIC ULCER [None]
  - MYOCARDIAL INFARCTION [None]
